FAERS Safety Report 5245131-1 (Version None)
Quarter: 2007Q1

REPORT INFORMATION
  Report Type: 
  Country: None (occurrence: None)
  Receive Date: 20070223
  Receipt Date: 20070213
  Transmission Date: 20070707
  Serious: Yes (Hospitalization)
  Sender: FDA-Public Use
  Company Number: PHBS2007TR02871

PATIENT
  Sex: Female

DRUGS (2)
  1. METFORMIN HCL [Concomitant]
  2. STARLIX [Suspect]
     Route: 048

REACTIONS (1)
  - HYPOGLYCAEMIC COMA [None]
